FAERS Safety Report 4650359-5 (Version None)
Quarter: 2005Q2

REPORT INFORMATION
  Report Type: 
  Country: None (occurrence: None)
  Receive Date: 20050429
  Receipt Date: 20050413
  Transmission Date: 20051028
  Serious: Yes (Hospitalization)
  Sender: FDA-Public Use
  Company Number: 2005SE02185

PATIENT
  Age: 71 Year
  Sex: Male

DRUGS (8)
  1. ROSUVASTATIN [Suspect]
     Indication: CARDIAC FAILURE
     Dates: start: 20040421
  2. FURANTHRIL [Concomitant]
  3. SALURETIN [Concomitant]
  4. LANITOP [Concomitant]
  5. OLICARD [Concomitant]
  6. SINTROM [Concomitant]
  7. AGAPURIN [Concomitant]
  8. BERLIPRIL [Concomitant]

REACTIONS (4)
  - CYANOSIS [None]
  - MOVEMENT DISORDER [None]
  - PAIN [None]
  - PERIPHERAL EMBOLISM [None]
